FAERS Safety Report 13786819 (Version 1)
Quarter: 2017Q3

REPORT INFORMATION
  Report Type: Spontaneous
  Country: US (occurrence: US)
  Receive Date: 20170725
  Receipt Date: 20170725
  Transmission Date: 20171127
  Serious: Yes (Other)
  Sender: FDA-Public Use
  Company Number: None

PATIENT
  Age: 70 Year
  Sex: Female
  Weight: 112 kg

DRUGS (7)
  1. ESCITALOPRAM [Concomitant]
     Active Substance: ESCITALOPRAM OXALATE
  2. ZANTAC [Concomitant]
     Active Substance: RANITIDINE HYDROCHLORIDE
  3. PROLIA [Suspect]
     Active Substance: DENOSUMAB
     Indication: OSTEOPOROSIS PROPHYLAXIS
     Route: 058
     Dates: start: 20170403, end: 20170403
  4. ALLEGRA [Concomitant]
     Active Substance: FEXOFENADINE HYDROCHLORIDE
  5. TYLENOL [Concomitant]
     Active Substance: ACETAMINOPHEN
  6. CHLORTHALIDONE. [Concomitant]
     Active Substance: CHLORTHALIDONE
  7. L-LYSINE [Concomitant]
     Active Substance: LYSINE

REACTIONS (2)
  - Knee arthroplasty [None]
  - Urinary tract infection [None]

NARRATIVE: CASE EVENT DATE: 20170407
